FAERS Safety Report 9470558 (Version 1)
Quarter: 2013Q3

REPORT INFORMATION
  Report Type: Spontaneous
  Country: BR (occurrence: BR)
  Receive Date: 20130822
  Receipt Date: 20130822
  Transmission Date: 20140515
  Serious: Yes (Other)
  Sender: FDA-Public Use
  Company Number: BR-PFIZER INC-2013242166

PATIENT
  Age: 66 Year
  Sex: Female

DRUGS (3)
  1. CITALOR [Suspect]
     Dosage: 10 MG, 1X/DAY (ONE TABLET ONCE A DAY)
     Route: 048
     Dates: start: 20130429, end: 2013
  2. GALVUS [Concomitant]
     Indication: HYPERTENSION
     Dosage: 1 DF, 1X/DAY
  3. PLAGREL [Concomitant]
     Indication: HYPERTENSION
     Dosage: 1 DF, 1X/DAY

REACTIONS (1)
  - Infarction [Unknown]
